FAERS Safety Report 23716153 (Version 3)
Quarter: 2025Q1

REPORT INFORMATION
  Report Type: Spontaneous
  Country: DE (occurrence: DE)
  Receive Date: 20240408
  Receipt Date: 20250109
  Transmission Date: 20250409
  Serious: Yes (Life-Threatening, Other)
  Sender: CHEPLAPHARM
  Company Number: None

PATIENT
  Sex: Female
  Weight: 71.199 kg

DRUGS (11)
  1. OLANZAPINE [Suspect]
     Active Substance: OLANZAPINE
  2. TAVOR (LORAZEPAM) [Suspect]
     Active Substance: LORAZEPAM
     Dates: start: 2019
  3. PERAZINE DIMALONATE [Suspect]
     Active Substance: PERAZINE DIMALONATE
     Indication: Schizophrenia
     Dosage: 1-0-1; LONG-TERM USE FOR 30 YEARS?DAILY DOSE: 50 MILLIGRAM
  4. AKINETON [Suspect]
     Active Substance: BIPERIDEN HYDROCHLORIDE
     Route: 048
  5. AKINETON [Suspect]
     Active Substance: BIPERIDEN HYDROCHLORIDE
  6. HALOPERIDOL [Suspect]
     Active Substance: HALOPERIDOL
     Indication: Ill-defined disorder
     Dates: start: 1987
  7. HALOPERIDOL [Suspect]
     Active Substance: HALOPERIDOL
     Indication: Ill-defined disorder
     Dates: start: 2019
  8. HALOPERIDOL [Suspect]
     Active Substance: HALOPERIDOL
     Indication: Ill-defined disorder
  9. HALOPERIDOL [Suspect]
     Active Substance: HALOPERIDOL
     Indication: Ill-defined disorder
     Route: 048
  10. PROMETHAZINE [Suspect]
     Active Substance: PROMETHAZINE HYDROCHLORIDE
     Indication: Restlessness
     Dosage: DAILY DOSE: 2 DOSAGE FORM
     Dates: start: 2023
  11. VALERIAN [Suspect]
     Active Substance: VALERIAN

REACTIONS (5)
  - Petit mal epilepsy [Not Recovered/Not Resolved]
  - Oculogyric crisis [Not Recovered/Not Resolved]
  - Epilepsy [Not Recovered/Not Resolved]
  - Vomiting [Not Recovered/Not Resolved]
  - Weight increased [Not Recovered/Not Resolved]
